FAERS Safety Report 5433418-9 (Version None)
Quarter: 2007Q3

REPORT INFORMATION
  Report Type: 
  Country: None (occurrence: None)
  Receive Date: 20070828
  Receipt Date: 20070828
  Transmission Date: 20080115
  Serious: Yes (Life-Threatening, Hospitalization)
  Sender: FDA-Public Use
  Company Number: None

PATIENT
  Age: 80 Year
  Sex: Male
  Weight: 104 kg

DRUGS (8)
  1. LOVASTATIN [Suspect]
     Indication: HYPERLIPIDAEMIA
     Dosage: 20MG HS PO
     Route: 048
     Dates: start: 20030528, end: 20070804
  2. CARBAMAZEPINE [Concomitant]
  3. DOXAZOSIN MESYLATE [Concomitant]
  4. LISINOPRIL [Concomitant]
  5. NORTRIPTYLINE HCL [Concomitant]
  6. MEMANTINE HCL [Concomitant]
  7. GALANTAMINE HYDROBROMIDE [Concomitant]
  8. METOPROLOL SUCCINATE [Concomitant]

REACTIONS (4)
  - BLOOD CREATININE INCREASED [None]
  - FALL [None]
  - RHABDOMYOLYSIS [None]
  - VOMITING [None]
